FAERS Safety Report 17239017 (Version 3)
Quarter: 2021Q4

REPORT INFORMATION
  Report Type: Spontaneous
  Country: PL (occurrence: PL)
  Receive Date: 20200106
  Receipt Date: 20211018
  Transmission Date: 20220303
  Serious: Yes (Life-Threatening, Hospitalization, Other)
  Sender: FDA-Public Use
  Company Number: PL-KRKA-PL2019K10534LIT

PATIENT
  Age: 7 Year
  Sex: Male

DRUGS (23)
  1. AMOXICILLIN\CLAVULANIC ACID [Suspect]
     Active Substance: AMOXICILLIN\CLAVULANIC ACID
     Indication: Asthma
     Dosage: UNK
     Route: 048
     Dates: start: 201804
  2. IBUPROFEN [Suspect]
     Active Substance: IBUPROFEN
     Indication: Pyrexia
     Dosage: UNK
     Route: 048
  3. IBUPROFEN [Suspect]
     Active Substance: IBUPROFEN
     Dosage: UNK
     Route: 048
  4. IBUPROFEN [Suspect]
     Active Substance: IBUPROFEN
     Dosage: UNK
     Route: 048
     Dates: start: 2018
  5. CEFUROXIME [Suspect]
     Active Substance: CEFUROXIME
     Indication: Infection
     Dosage: UNK
     Route: 048
     Dates: start: 201705
  6. BUDESONIDE [Suspect]
     Active Substance: BUDESONIDE
     Indication: Anaphylactic reaction
     Dosage: UNK
     Route: 055
  7. BUDESONIDE [Suspect]
     Active Substance: BUDESONIDE
     Dosage: UNK
     Route: 055
     Dates: start: 2018
  8. CLARITHROMYCIN [Suspect]
     Active Substance: CLARITHROMYCIN
     Indication: Infection
     Dosage: UNK
  9. ACETAMINOPHEN [Suspect]
     Active Substance: ACETAMINOPHEN
     Indication: Pyrexia
     Dosage: UNK
  10. ACETAMINOPHEN [Suspect]
     Active Substance: ACETAMINOPHEN
     Dosage: UNK
     Dates: start: 2018
  11. AZITHROMYCIN ANHYDROUS [Concomitant]
     Active Substance: AZITHROMYCIN ANHYDROUS
     Indication: Pneumonia
     Dosage: UNK
     Dates: start: 2018
  12. AMOXICILLIN AND CLAVULANATE POTASSIUM [Concomitant]
     Active Substance: AMOXICILLIN\CLAVULANATE POTASSIUM
     Indication: Pneumonia
     Dosage: UNK
     Route: 042
  13. AMOXICILLIN AND CLAVULANATE POTASSIUM [Concomitant]
     Active Substance: AMOXICILLIN\CLAVULANATE POTASSIUM
     Indication: Asthma
     Dosage: UNK
     Route: 042
     Dates: start: 201804
  14. AMOXICILLIN AND CLAVULANATE POTASSIUM [Concomitant]
     Active Substance: AMOXICILLIN\CLAVULANATE POTASSIUM
     Indication: Pharyngitis
     Dosage: UNK
     Route: 042
     Dates: start: 201804
  15. AMOXICILLIN AND CLAVULANATE POTASSIUM [Concomitant]
     Active Substance: AMOXICILLIN\CLAVULANATE POTASSIUM
     Dosage: UNK
     Route: 042
     Dates: start: 2018
  16. EPINEPHRINE [Concomitant]
     Active Substance: EPINEPHRINE
     Indication: Anaphylactic reaction
     Dosage: UNK
  17. EPINEPHRINE [Concomitant]
     Active Substance: EPINEPHRINE
     Dosage: UNK
     Dates: start: 2018
  18. DEXAMETHASONE [Concomitant]
     Active Substance: DEXAMETHASONE
     Indication: Anaphylactic reaction
     Dosage: UNK
  19. DEXAMETHASONE [Concomitant]
     Active Substance: DEXAMETHASONE
     Dosage: UNK
     Dates: start: 2018
  20. AMOXICILLIN [Concomitant]
     Active Substance: AMOXICILLIN
     Indication: Pharyngitis
     Dosage: UNK
  21. AMIKACIN SULFATE [Concomitant]
     Active Substance: AMIKACIN SULFATE
     Indication: Pneumonia
     Dosage: UNK
     Route: 041
     Dates: start: 2018
  22. AMIKACIN SULFATE [Concomitant]
     Active Substance: AMIKACIN SULFATE
     Dosage: UNK
     Route: 041
  23. OXYGEN [Concomitant]
     Active Substance: OXYGEN
     Indication: Anaphylactic reaction
     Dosage: UNK

REACTIONS (17)
  - Anaphylactic reaction [Recovered/Resolved]
  - Asthma [Recovered/Resolved]
  - Helicobacter infection [Unknown]
  - Rotavirus infection [Unknown]
  - Bronchospasm [Unknown]
  - Blood pressure decreased [Unknown]
  - Pyrexia [Unknown]
  - Dyspnoea [Unknown]
  - Face oedema [Unknown]
  - Malaise [Unknown]
  - Pruritus [Unknown]
  - Urticaria [Unknown]
  - Drug hypersensitivity [Unknown]
  - Diarrhoea [Unknown]
  - Vomiting [Unknown]
  - Off label use [Unknown]
  - Intentional product misuse [Unknown]

NARRATIVE: CASE EVENT DATE: 20180101
